FAERS Safety Report 10006465 (Version 1)
Quarter: 2014Q1

REPORT INFORMATION
  Report Type: Report from Study
  Country: US (occurrence: US)
  Receive Date: 20140313
  Receipt Date: 20140313
  Transmission Date: 20141002
  Serious: Yes (Hospitalization)
  Sender: FDA-Public Use
  Company Number: US-B.I. PHARMACEUTICALS,INC./RIDGEFIELD-2014-BI-10048BI

PATIENT
  Age: 87 Year
  Sex: Female

DRUGS (7)
  1. DABIGATRAN [Suspect]
     Indication: ATRIAL FIBRILLATION
     Dosage: 75 MG
     Route: 048
  2. ASA [Concomitant]
     Dosage: 81 MG
     Route: 048
  3. ZOCOR [Concomitant]
     Dosage: 480 MG
     Route: 048
  4. METOPROLOL [Concomitant]
     Dosage: 100 MG
     Route: 048
  5. LISINOPRIL [Concomitant]
     Dosage: 5 MG
     Route: 048
  6. AMIODARONE [Concomitant]
     Dosage: 200 MG
     Route: 048
  7. PROTONIX [Concomitant]
     Dosage: 40 MG
     Route: 048
     Dates: start: 20120519

REACTIONS (1)
  - Anaemia [Unknown]
